FAERS Safety Report 10041700 (Version 1)
Quarter: 2014Q1

REPORT INFORMATION
  Report Type: Spontaneous
  Country: US (occurrence: None)
  Receive Date: 20140325
  Receipt Date: 20140325
  Transmission Date: 20141002
  Serious: Yes (Other)
  Sender: FDA-Public Use
  Company Number: 001689802A

PATIENT
  Age: 53 Year
  Sex: Female

DRUGS (3)
  1. MB * ANTIOXIDANT DAY CREME SPF 20 [Suspect]
     Dosage: ONCE DAILY DERMAL  THERAPY DATES 09/10/2013-09/11/2013
     Dates: start: 20130910, end: 20130911
  2. MB* SKIN BRIGHTENING DECOLLETE+NECK TREATMENT SPF 15 [Suspect]
     Dosage: ONCE DAILY DERMAL
     Dates: start: 20130910, end: 20130911
  3. CHOLESTEROL MEDICATION [Concomitant]

REACTIONS (3)
  - Urticaria [None]
  - Urticaria [None]
  - Eye swelling [None]
